FAERS Safety Report 8871218 (Version 1)
Quarter: 2012Q4

REPORT INFORMATION
  Report Type: 
  Country: SE (occurrence: SE)
  Receive Date: 20121029
  Receipt Date: 20121029
  Transmission Date: 20130627
  Serious: Yes (Hospitalization)
  Sender: FDA-Public Use
  Company Number: SE-JNJFOC-20121010807

PATIENT
  Sex: Female

DRUGS (6)
  1. CONCERTA [Suspect]
     Indication: ATTENTION DEFICIT/HYPERACTIVITY DISORDER
     Dosage: 54 mg in the morning and 18 mg at 14:00 hours
     Route: 048
  2. TOPIMAX [Concomitant]
     Indication: ELEVATED MOOD
     Route: 048
  3. ABILIFY [Concomitant]
     Route: 065
  4. CYMBALTA [Concomitant]
     Route: 065
  5. PROPAVAN [Concomitant]
     Route: 065
  6. IMOVANE [Concomitant]
     Dosage: in the evening
     Route: 065

REACTIONS (2)
  - Myocardial infarction [Unknown]
  - Withdrawal syndrome [Unknown]
